APPROVED DRUG PRODUCT: SODIUM CHLORIDE 0.9%
Active Ingredient: SODIUM CHLORIDE
Strength: 90MG/10ML (9MG/ML)
Dosage Form/Route: SOLUTION;INJECTION
Application: A201833 | Product #002 | TE Code: AP
Applicant: HIKMA PHARMACEUTICALS USA INC
Approved: Jan 7, 2015 | RLD: No | RS: No | Type: RX